FAERS Safety Report 23301566 (Version 1)
Quarter: 2023Q4

REPORT INFORMATION
  Report Type: Spontaneous
  Country: US (occurrence: US)
  Receive Date: 20231215
  Receipt Date: 20231215
  Transmission Date: 20240110
  Serious: Yes (Hospitalization, Other)
  Sender: FDA-Public Use
  Company Number: US-009507513-2312USA004407

PATIENT
  Age: 53 Year
  Sex: Male

DRUGS (2)
  1. CUBICIN [Suspect]
     Active Substance: DAPTOMYCIN
     Indication: Paraspinal abscess
     Dosage: VIA PERIPHERALLY INSERTED CENTRAL VENOUS CATHETER (PICC) LINE
  2. CUBICIN [Suspect]
     Active Substance: DAPTOMYCIN
     Indication: Pneumonia

REACTIONS (2)
  - Eosinophilic pneumonia acute [Recovered/Resolved]
  - Product use in unapproved indication [Unknown]
